FAERS Safety Report 6874955-X (Version None)
Quarter: 2010Q2

REPORT INFORMATION
  Report Type: 
  Country: None (occurrence: None)
  Receive Date: 20100616
  Receipt Date: 20090805
  Transmission Date: 20101027
  Serious: Yes (Hospitalization)
  Sender: FDA-Public Use
  Company Number: 1000007968

PATIENT
  Age: 77 Year
  Sex: Female

DRUGS (8)
  1. NAMENDA [Suspect]
     Indication: DEMENTIA ALZHEIMER'S TYPE
     Dosage: ORAL
     Route: 048
     Dates: end: 20090401
  2. NAMENDA [Suspect]
     Indication: DEMENTIA ALZHEIMER'S TYPE
     Dosage: 15 MG, ORAL ; 10 MG (5 MG,2 IN 1 D),ORAL
     Route: 048
     Dates: start: 20090401, end: 20090701
  3. NAMENDA [Suspect]
     Indication: DEMENTIA ALZHEIMER'S TYPE
     Dosage: 15 MG, ORAL ; 10 MG (5 MG,2 IN 1 D),ORAL
     Route: 048
     Dates: start: 20090701
  4. DETROL LA [Suspect]
     Dates: end: 20090701
  5. EXELON [Concomitant]
  6. ACTONEL [Concomitant]
  7. SYNTHROID [Concomitant]
  8. SUPPLEMENT (NOS) [Concomitant]

REACTIONS (3)
  - ASTHENIA [None]
  - DIZZINESS [None]
  - URINARY TRACT INFECTION [None]
